FAERS Safety Report 10800229 (Version 1)
Quarter: 2015Q1

REPORT INFORMATION
  Report Type: Spontaneous
  Country: US (occurrence: US)
  Receive Date: 20150216
  Receipt Date: 20150216
  Transmission Date: 20150721
  Serious: No
  Sender: FDA-Public Use
  Company Number: US-ALLERGAN-1414608US

PATIENT
  Age: 57 Year
  Sex: Female

DRUGS (1)
  1. RESTASIS [Suspect]
     Active Substance: CYCLOSPORINE
     Indication: DRY EYE
     Dosage: 2 GTT, UNK
     Route: 047
     Dates: start: 2013

REACTIONS (6)
  - Lacrimation increased [Unknown]
  - Inappropriate schedule of drug administration [Unknown]
  - Foreign body sensation in eyes [Unknown]
  - Eye discharge [Unknown]
  - Superficial injury of eye [Unknown]
  - Eye pain [Unknown]
